FAERS Safety Report 9660529 (Version 1)
Quarter: 2013Q4

REPORT INFORMATION
  Report Type: Spontaneous
  Country: US (occurrence: US)
  Receive Date: 20131031
  Receipt Date: 20131031
  Transmission Date: 20140711
  Serious: No
  Sender: FDA-Public Use
  Company Number: US-009507513-1310USA014642

PATIENT
  Sex: Female

DRUGS (2)
  1. TEMODAR [Suspect]
     Indication: MALIGNANT MELANOMA
     Dosage: 360 MG, QD, FOR 5 DAYS FOR ONE MONTH
     Route: 048
     Dates: start: 201307, end: 20130927
  2. PLAVIX [Concomitant]

REACTIONS (2)
  - Metastasis [Unknown]
  - Fatigue [Recovering/Resolving]
